FAERS Safety Report 25006503 (Version 1)
Quarter: 2025Q1

REPORT INFORMATION
  Report Type: Spontaneous
  Country: US (occurrence: US)
  Receive Date: 20250224
  Receipt Date: 20250224
  Transmission Date: 20250409
  Serious: Yes (Other)
  Sender: NOVO NORDISK
  Company Number: US-NOVOPROD-1373069

PATIENT
  Sex: Male

DRUGS (2)
  1. OZEMPIC [Suspect]
     Active Substance: SEMAGLUTIDE
     Indication: Weight control
     Route: 058
     Dates: start: 20250115
  2. OZEMPIC [Suspect]
     Active Substance: SEMAGLUTIDE
     Indication: Diabetes mellitus
     Route: 058

REACTIONS (6)
  - Cardiac failure congestive [Unknown]
  - Illness [Unknown]
  - Blood glucose decreased [Unknown]
  - Asthenia [Unknown]
  - Nausea [Unknown]
  - Off label use [Unknown]
